FAERS Safety Report 11202100 (Version 1)
Quarter: 2015Q2

REPORT INFORMATION
  Report Type: Spontaneous
  Country: US (occurrence: None)
  Receive Date: 20150617
  Receipt Date: 20150617
  Transmission Date: 20150821
  Serious: No
  Sender: FDA-Public Use
  Company Number: PR 10238

PATIENT
  Age: 89 Year
  Sex: Female
  Weight: 58.97 kg

DRUGS (2)
  1. ZIOPTAN [Suspect]
     Active Substance: TAFLUPROST
     Indication: GLAUCOMA
     Dates: start: 201312, end: 201404
  2. PILL FOR INABILITY TO URINATE (UNSPECIFIED) [Concomitant]

REACTIONS (4)
  - Headache [None]
  - Oropharyngeal pain [None]
  - Dysuria [None]
  - Urticaria [None]

NARRATIVE: CASE EVENT DATE: 201405
